FAERS Safety Report 5688895-5 (Version None)
Quarter: 2008Q1

REPORT INFORMATION
  Report Type: 
  Country: None (occurrence: None)
  Receive Date: 20080331
  Receipt Date: 20080320
  Transmission Date: 20080703
  Serious: Yes (Hospitalization)
  Sender: FDA-Public Use
  Company Number: IT-BAYER-200815382GPV

PATIENT
  Age: 77 Year
  Sex: Male

DRUGS (4)
  1. ASPIRIN [Suspect]
     Indication: ANTICOAGULANT THERAPY
     Dosage: TOTAL DAILY DOSE: 100 MG  UNIT DOSE: 100 MG
     Route: 048
     Dates: start: 20080310, end: 20080312
  2. LASIX [Concomitant]
     Indication: POLYURIA
     Dosage: UNIT DOSE: 25 MG
     Route: 048
     Dates: start: 20080301, end: 20080312
  3. COMBISARTAN [Concomitant]
     Indication: HYPERTENSION
     Route: 048
     Dates: start: 20080301, end: 20080312
  4. DEPONIT [Concomitant]
     Indication: HYPERTENSIVE HEART DISEASE
     Dosage: TOTAL DAILY DOSE: 10 MG  UNIT DOSE: 10 MG
     Route: 062
     Dates: start: 20080301, end: 20080312

REACTIONS (3)
  - DUODENAL ULCER [None]
  - RECTAL HAEMORRHAGE [None]
  - SYNCOPE [None]
